FAERS Safety Report 6172171-0 (Version None)
Quarter: 2009Q2

REPORT INFORMATION
  Report Type: 
  Country: None (occurrence: None)
  Receive Date: 20090429
  Receipt Date: 20081107
  Transmission Date: 20091009
  Serious: No
  Sender: FDA-Public Use
  Company Number: A0755406A

PATIENT
  Sex: Female

DRUGS (2)
  1. ZOFRAN [Suspect]
     Indication: PROPHYLAXIS OF NAUSEA AND VOMITING
     Dosage: 12MG VARIABLE DOSE
     Route: 048
  2. CHEMOTHERAPY [Concomitant]

REACTIONS (1)
  - CONSTIPATION [None]
